FAERS Safety Report 4747642-1 (Version None)
Quarter: 2005Q3

REPORT INFORMATION
  Report Type: 
  Country: None (occurrence: None)
  Receive Date: 20050818
  Receipt Date: 20050323
  Transmission Date: 20060218
  Serious: No
  Sender: FDA-Public Use
  Company Number: US-BRISTOL-MYERS SQUIBB COMPANY-12908216

PATIENT
  Age: 71 Year
  Sex: Male
  Weight: 102 kg

DRUGS (8)
  1. TEQUIN [Suspect]
     Route: 048
     Dates: start: 20050311
  2. SYNTHROID [Concomitant]
  3. HYZAAR [Concomitant]
     Dosage: 50 / 12.5 MG
  4. MANDELAMINE [Concomitant]
  5. HYTRIN [Concomitant]
  6. VYTORIN [Concomitant]
     Dosage: 10 / 40 MG
  7. TOPROL-XL [Concomitant]
  8. FUROSEMIDE [Concomitant]

REACTIONS (1)
  - BLOOD GLUCOSE INCREASED [None]
